FAERS Safety Report 25378544 (Version 2)
Quarter: 2025Q3

REPORT INFORMATION
  Report Type: Report from Study
  Country: US (occurrence: US)
  Receive Date: 20250530
  Receipt Date: 20250829
  Transmission Date: 20251021
  Serious: Yes (Other)
  Sender: BLUEBIRD BIO
  Company Number: US-BLUEBIRD BIO-US-BBB-25-00034

PATIENT
  Age: 12 Year
  Sex: Male
  Weight: 39.2 kg

DRUGS (17)
  1. ZYNTEGLO [Suspect]
     Active Substance: BETIBEGLOGENE AUTOTEMCEL
     Indication: Thalassaemia beta
     Route: 042
     Dates: start: 20250311, end: 20250311
  2. GRANULOCYTE COLONY-STIMULATING FACTOR NOS [Concomitant]
     Active Substance: GRANULOCYTE COLONY-STIMULATING FACTOR NOS
     Indication: Haematopoietic stem cell mobilisation
     Route: 065
     Dates: start: 20240329, end: 20240402
  3. GRANULOCYTE COLONY-STIMULATING FACTOR NOS [Concomitant]
     Active Substance: GRANULOCYTE COLONY-STIMULATING FACTOR NOS
     Route: 065
     Dates: start: 20241102, end: 20241105
  4. PLERIXAFOR [Concomitant]
     Active Substance: PLERIXAFOR
     Indication: Haematopoietic stem cell mobilisation
     Route: 065
     Dates: start: 20240402, end: 20240403
  5. PLERIXAFOR [Concomitant]
     Active Substance: PLERIXAFOR
     Route: 065
     Dates: start: 20241106, end: 20241106
  6. BUSULFAN [Concomitant]
     Active Substance: BUSULFAN
     Indication: Bone marrow conditioning regimen
     Dosage: 120 MILLIGRAM, QD
     Route: 065
     Dates: start: 20250305, end: 20250306
  7. BUSULFAN [Concomitant]
     Active Substance: BUSULFAN
     Dosage: 150 MILLIGRAM, QD
     Route: 065
     Dates: start: 20250307, end: 20250308
  8. ACTIGALL [Concomitant]
     Active Substance: URSODIOL
     Indication: Sickle cell anaemia with crisis
     Dosage: 300 MILLIGRAM, BID
     Route: 048
     Dates: start: 20250304, end: 20250326
  9. ACYCLOVIR [Concomitant]
     Active Substance: ACYCLOVIR
     Indication: Antiviral prophylaxis
     Dosage: 250 MILLIGRAM/SQ. METER, BID
     Route: 065
     Dates: start: 20250304
  10. CEFEPIME [Concomitant]
     Active Substance: CEFEPIME HYDROCHLORIDE
     Indication: Antibiotic prophylaxis
     Dosage: 50 MILLIGRAM/KILOGRAM, Q8H
     Route: 065
     Dates: start: 20250318, end: 20250410
  11. MICAFUNGIN [Concomitant]
     Active Substance: MICAFUNGIN SODIUM
     Indication: Antifungal prophylaxis
     Dosage: 1 MILLIGRAM/KILOGRAM, QD
     Route: 065
     Dates: start: 20250304
  12. OLANZAPINE [Concomitant]
     Active Substance: OLANZAPINE
     Indication: Sleep disorder
     Dosage: 5 MILLIGRAM, QD
     Route: 065
     Dates: start: 20250305, end: 20250416
  13. ACETAMINOPHEN [Concomitant]
     Active Substance: ACETAMINOPHEN
     Indication: Mucosal inflammation
     Dosage: 500 MILLIGRAM, Q6H
     Route: 065
     Dates: start: 20250322, end: 20250323
  14. MORPHINE [Concomitant]
     Active Substance: MORPHINE
     Indication: Mucosal inflammation
     Route: 065
     Dates: start: 20250322, end: 20250416
  15. SENNA S [Concomitant]
     Active Substance: DOCUSATE SODIUM\SENNOSIDES
     Indication: Constipation
     Dosage: 8.6 MILLIGRAM, BID
     Route: 065
     Dates: start: 20250322, end: 20250330
  16. DEFERASIROX [Concomitant]
     Active Substance: DEFERASIROX
     Indication: Iron overload
     Dosage: 720 MILLIGRAM, QD
     Route: 065
     Dates: start: 20240325, end: 20250201
  17. CHOLECALCIFEROL [Concomitant]
     Active Substance: CHOLECALCIFEROL
     Indication: Supplementation therapy

REACTIONS (1)
  - Venoocclusive liver disease [Recovered/Resolved]

NARRATIVE: CASE EVENT DATE: 20250326
